FAERS Safety Report 5834047-5 (Version None)
Quarter: 2008Q3

REPORT INFORMATION
  Report Type: 
  Country: None (occurrence: None)
  Receive Date: 20080805
  Receipt Date: 20080725
  Transmission Date: 20090109
  Serious: No
  Sender: FDA-Public Use
  Company Number: US-ELI_LILLY_AND_COMPANY-US200805002850

PATIENT
  Sex: Female

DRUGS (3)
  1. FORTEO [Suspect]
     Dosage: UNK, UNK
     Dates: end: 20050101
  2. COUMADIN [Concomitant]
     Dosage: 6 DAYS A WEEK
  3. COUMADIN [Concomitant]
     Dosage: 2.5 MG, UNKNOWN

REACTIONS (1)
  - ARTHRITIS [None]
